FAERS Safety Report 8000279-3 (Version None)
Quarter: 2011Q4

REPORT INFORMATION
  Report Type: 
  Country: None (occurrence: None)
  Receive Date: 20111220
  Receipt Date: 20111220
  Transmission Date: 20120403
  Serious: Yes (Other)
  Sender: FDA-Public Use
  Company Number: None

PATIENT
  Sex: Male
  Weight: 105.6881 kg

DRUGS (1)
  1. PRADAXA [Suspect]
     Indication: ATRIAL FIBRILLATION
     Dosage: 2-CAPSULES DAILY MOUTH
     Route: 048
     Dates: start: 20111029, end: 20111101

REACTIONS (3)
  - RASH [None]
  - HAEMATOCHEZIA [None]
  - SKIN DISCOLOURATION [None]
